FAERS Safety Report 9716648 (Version 1)
Quarter: 2013Q4

REPORT INFORMATION
  Report Type: Spontaneous
  Country: US (occurrence: US)
  Receive Date: 20131127
  Receipt Date: 20131127
  Transmission Date: 20140711
  Serious: Yes (Hospitalization)
  Sender: FDA-Public Use
  Company Number: US-PFIZER INC-2013334429

PATIENT
  Age: 31 Year
  Sex: Male

DRUGS (13)
  1. OXYCODONE HYDROCHLORIDE [Suspect]
     Indication: PAIN
     Dosage: 120 MG EVERY 3 H AS NEEDED
  2. OXYCODONE HYDROCHLORIDE [Suspect]
     Indication: SICKLE CELL ANAEMIA WITH CRISIS
     Dosage: EVERY 3 H
  3. KETOROLAC TROMETHAMINE [Suspect]
     Indication: PAIN
     Dosage: UNK
  4. KETOROLAC TROMETHAMINE [Suspect]
     Indication: SICKLE CELL ANAEMIA WITH CRISIS
  5. FENTANYL [Suspect]
     Indication: ANALGESIC THERAPY
     Dosage: FENTANYL PATIENT-CONTROLLED ANALGESIA
  6. FENTANYL [Suspect]
     Indication: SICKLE CELL ANAEMIA WITH CRISIS
  7. METHADONE [Suspect]
     Indication: PAIN
     Dosage: 80 MG, 3X/DAY
  8. METHADONE [Suspect]
     Indication: SICKLE CELL ANAEMIA WITH CRISIS
  9. LEVOFLOXACIN [Concomitant]
     Indication: PNEUMONIA
     Dosage: UNK
     Route: 042
  10. GABAPENTIN [Concomitant]
     Indication: ANALGESIC THERAPY
     Dosage: UNK
  11. GABAPENTIN [Concomitant]
     Indication: SICKLE CELL ANAEMIA WITH CRISIS
  12. VENLAFAXINE [Concomitant]
     Indication: ANALGESIC THERAPY
     Dosage: UNK
  13. VENLAFAXINE [Concomitant]
     Indication: SICKLE CELL ANAEMIA WITH CRISIS

REACTIONS (1)
  - Hyperaesthesia [Recovering/Resolving]
